FAERS Safety Report 4295984-9 (Version None)
Quarter: 2004Q1

REPORT INFORMATION
  Report Type: 
  Country: None (occurrence: None)
  Receive Date: 20040212
  Receipt Date: 20040127
  Transmission Date: 20041129
  Serious: Yes (Death, Life-Threatening, Hospitalization)
  Sender: FDA-Public Use
  Company Number: 230824

PATIENT
  Age: 79 Year
  Sex: Female
  Weight: 56 kg

DRUGS (10)
  1. MIXTARD 30 (INSULIN HUMAN) SUSPENSION FOR INJECTION [Suspect]
     Indication: INSULIN-REQUIRING TYPE II DIABETES MELLITUS
     Dosage: 40 IU, QD, SUBCUTANEOUS
     Route: 058
     Dates: start: 19930110
  2. ATENOLOL [Concomitant]
  3. ALEPSAL (BELLADONNA EXTRACT, CAFFEINE, PHENOBARBITAL) [Concomitant]
  4. ZESTORETIC ^STUART COMPANY^ (LISINOPRIL, HDYROCHLOROTHIAZIDE) [Concomitant]
  5. ADANCOR (NICORANDIL) [Concomitant]
  6. PRAVASTATIN SODIUM [Concomitant]
  7. VITAMIN K1 [Concomitant]
  8. ATARAX [Concomitant]
  9. IOMERON ^GEROT^ (IOMEPROL) [Concomitant]
  10. MICROPAQUE [Concomitant]

REACTIONS (1)
  - JAUNDICE CHOLESTATIC [None]
